FAERS Safety Report 24970645 (Version 2)
Quarter: 2025Q1

REPORT INFORMATION
  Report Type: Report from Study
  Country: ES (occurrence: ES)
  Receive Date: 20250214
  Receipt Date: 20250219
  Transmission Date: 20250408
  Serious: Yes (Other)
  Sender: JOHNSON AND JOHNSON
  Company Number: ES-JNJFOC-20250220984

PATIENT
  Age: 49 Year
  Sex: Female

DRUGS (2)
  1. SPRAVATO [Suspect]
     Active Substance: ESKETAMINE
     Indication: Depression
     Route: 045
  2. SPRAVATO [Suspect]
     Active Substance: ESKETAMINE
     Indication: Major depression

REACTIONS (7)
  - Paralysis [Unknown]
  - Depersonalisation/derealisation disorder [Unknown]
  - Dysgeusia [Unknown]
  - Palmomental reflex [Unknown]
  - Urticaria [Unknown]
  - Tachypnoea [Unknown]
  - Therapeutic response decreased [Unknown]
